FAERS Safety Report 8139257-2 (Version None)
Quarter: 2012Q1

REPORT INFORMATION
  Report Type: 
  Country: None (occurrence: None)
  Receive Date: 20120215
  Receipt Date: 20120206
  Transmission Date: 20120608
  Serious: Yes (Other)
  Sender: FDA-Public Use
  Company Number: CA-B.I. PHARMACEUTICALS,INC./RIDGEFIELD-2012-CN-00187CN

PATIENT
  Age: 41 Year
  Sex: Male

DRUGS (6)
  1. AGENERASE [Suspect]
  2. INTELENCE [Suspect]
     Route: 065
  3. LAMIVUDINE [Suspect]
     Route: 065
  4. TIPRANAVIR + RITONAVIR CO-ADMIN [Suspect]
     Route: 065
  5. SUSTIVA [Suspect]
     Route: 065
  6. VIDEX EC [Suspect]
     Route: 065

REACTIONS (3)
  - FATIGUE [None]
  - CONFUSIONAL STATE [None]
  - HEADACHE [None]
